FAERS Safety Report 7796634-7 (Version None)
Quarter: 2011Q4

REPORT INFORMATION
  Report Type: 
  Country: None (occurrence: None)
  Receive Date: 20111005
  Receipt Date: 20110923
  Transmission Date: 20120403
  Serious: Yes (Hospitalization, Other)
  Sender: FDA-Public Use
  Company Number: US-BAYER-2011-015689

PATIENT
  Age: 31 Year
  Sex: Female
  Weight: 78.005 kg

DRUGS (3)
  1. YAZ [Suspect]
     Indication: PREMENSTRUAL SYNDROME
  2. MOTRIN [Concomitant]
     Dosage: UNK
     Route: 048
     Dates: start: 20050101, end: 20100101
  3. YAZ [Suspect]
     Indication: ACNE
     Dosage: UNK
     Dates: start: 20080501

REACTIONS (10)
  - PULMONARY EMBOLISM [None]
  - DEEP VEIN THROMBOSIS [None]
  - PAIN [None]
  - CEREBROVASCULAR ACCIDENT [None]
  - INJURY [None]
  - MYOCARDIAL INFARCTION [None]
  - ANXIETY [None]
  - GALLBLADDER DISORDER [None]
  - CHOLECYSTITIS CHRONIC [None]
  - FEAR [None]
